FAERS Safety Report 9914514 (Version 2)
Quarter: 2014Q1

REPORT INFORMATION
  Report Type: Spontaneous
  Country: US (occurrence: AU)
  Receive Date: 20140220
  Receipt Date: 20140327
  Transmission Date: 20141002
  Serious: Yes (Other)
  Sender: FDA-Public Use
  Company Number: AU-FRI-1000054347

PATIENT
  Age: 38 Year
  Sex: Female
  Weight: 90 kg

DRUGS (5)
  1. SAPHRIS [Suspect]
     Dosage: 10 MG
     Route: 060
     Dates: start: 201307
  2. SAPHRIS [Suspect]
     Dosage: 20 MG
     Route: 060
  3. VALPROATE SODIUM [Concomitant]
     Dosage: 1200 MG
  4. LAMOTRIGINE [Concomitant]
  5. LIPITOR [Concomitant]

REACTIONS (1)
  - Rectal haemorrhage [Not Recovered/Not Resolved]
